FAERS Safety Report 6564529-2 (Version None)
Quarter: 2010Q1

REPORT INFORMATION
  Report Type: 
  Country: None (occurrence: None)
  Receive Date: 20100201
  Receipt Date: 20100125
  Transmission Date: 20100710
  Serious: Yes (Death)
  Sender: FDA-Public Use
  Company Number: IT-ELI_LILLY_AND_COMPANY-IT201001002087

PATIENT
  Sex: Male
  Weight: 71 kg

DRUGS (3)
  1. ATOMOXETINE HCL [Suspect]
     Indication: ATTENTION DEFICIT/HYPERACTIVITY DISORDER
     Dosage: UNK, DAILY (1/D)
     Dates: start: 20090606, end: 20090622
  2. ATOMOXETINE HCL [Suspect]
     Dosage: 80 MG, DAILY (1/D)
     Route: 048
     Dates: start: 20090622, end: 20090704
  3. ATOMOXETINE HCL [Suspect]
     Dosage: 100 MG, DAILY (1/D)
     Dates: start: 20090704

REACTIONS (1)
  - MYOCARDIAL INFARCTION [None]
